FAERS Safety Report 4657715-X (Version None)
Quarter: 2005Q2

REPORT INFORMATION
  Report Type: 
  Country: None (occurrence: None)
  Receive Date: 20050404
  Receipt Date: 20041221
  Transmission Date: 20051028
  Serious: No
  Sender: FDA-Public Use
  Company Number: USA041286700

PATIENT
  Age: 74 Year
  Sex: Female
  Weight: 77 kg

DRUGS (8)
  1. CYMBALTA [Suspect]
     Indication: NEUROPATHY
     Dosage: 30 MG DAY
  2. DIABETIC MEDS [Concomitant]
  3. ZOCOR (SIMVASTATIN RATIOPHARM) [Concomitant]
  4. HYZAAR [Concomitant]
  5. NORVASC [Concomitant]
  6. METFORMIN [Concomitant]
  7. XANAX (ALPRAZOLAM DUM) [Concomitant]
  8. SYNTHROID [Concomitant]

REACTIONS (4)
  - APATHY [None]
  - FEELING ABNORMAL [None]
  - MUSCLE SPASMS [None]
  - STOMACH DISCOMFORT [None]
